FAERS Safety Report 20796818 (Version 1)
Quarter: 2022Q2

REPORT INFORMATION
  Report Type: Spontaneous
  Country: US (occurrence: US)
  Receive Date: 20220506
  Receipt Date: 20220506
  Transmission Date: 20220721
  Serious: No
  Sender: FDA-Public Use
  Company Number: US-BAUSCH-BL-2022-010600

PATIENT
  Sex: Female

DRUGS (2)
  1. BRYHALI [Suspect]
     Active Substance: HALOBETASOL PROPIONATE
     Indication: Urticaria
     Route: 061
     Dates: start: 20220425
  2. BRYHALI [Suspect]
     Active Substance: HALOBETASOL PROPIONATE
     Indication: Product use in unapproved indication

REACTIONS (4)
  - Drug hypersensitivity [Unknown]
  - Urticaria [Unknown]
  - Condition aggravated [Unknown]
  - Product use in unapproved indication [Unknown]
